FAERS Safety Report 21558055 (Version 1)
Quarter: 2022Q4

REPORT INFORMATION
  Report Type: Spontaneous
  Country: US (occurrence: US)
  Receive Date: 20221107
  Receipt Date: 20221107
  Transmission Date: 20230113
  Serious: No
  Sender: FDA-Public Use
  Company Number: US-drreddys-SPO/USA/22/0156415

PATIENT
  Age: 23 Year

DRUGS (1)
  1. ACCUTANE [Suspect]
     Active Substance: ISOTRETINOIN
     Indication: Acne
     Dosage: RMA ISSUE DATE: 15 JUNE 2022 06:18:10 PM, 14 JULY 2022 01:51:23 PM, 17 AUGUST 2022 01:04:35 PM AND 1

REACTIONS (1)
  - Adverse drug reaction [Unknown]
